FAERS Safety Report 4930733-X (Version None)
Quarter: 2006Q1

REPORT INFORMATION
  Report Type: 
  Country: None (occurrence: None)
  Receive Date: 20060227
  Receipt Date: 20060213
  Transmission Date: 20060701
  Serious: Yes (Hospitalization, Other)
  Sender: FDA-Public Use
  Company Number: 2006022076

PATIENT
  Sex: Female
  Weight: 48.0813 kg

DRUGS (9)
  1. DETROL LA [Suspect]
     Indication: POLLAKIURIA
     Dosage: 2 MG (2 MG, 1 IN 1 D)
     Dates: start: 19980101
  2. FOSAMAX [Concomitant]
  3. REMERON [Concomitant]
  4. ZYPREXA [Concomitant]
  5. VALTREX (VALACALCICLOVIR HYDROCHLORIDE) [Concomitant]
  6. PAXIL [Concomitant]
  7. RELAFEN [Concomitant]
  8. OXYCODONE HCL [Concomitant]
  9. ESTRATEST [Concomitant]

REACTIONS (6)
  - ABDOMINAL PAIN [None]
  - BLOOD URINE PRESENT [None]
  - CYSTITIS INTERSTITIAL [None]
  - FISTULA [None]
  - PAIN [None]
  - VAGINAL HAEMORRHAGE [None]
